FAERS Safety Report 8008603-2 (Version None)
Quarter: 2011Q4

REPORT INFORMATION
  Report Type: 
  Country: None (occurrence: None)
  Receive Date: 20111227
  Receipt Date: 20111220
  Transmission Date: 20120403
  Serious: Yes (Other)
  Sender: FDA-Public Use
  Company Number: PT-JNJFOC-20111210180

PATIENT
  Age: 24 Year
  Sex: Female

DRUGS (4)
  1. RISPERIDONE [Suspect]
     Indication: EPILEPSY
     Route: 065
  2. LEVETIRACETAM [Suspect]
     Indication: EPILEPSY
     Route: 065
  3. TOPIRAMATE [Suspect]
     Indication: EPILEPSY
     Route: 048
  4. CARBAMAZEPINE [Suspect]
     Indication: EPILEPSY
     Route: 065

REACTIONS (2)
  - CHOKING [None]
  - CONVULSION [None]
